FAERS Safety Report 9358730 (Version 3)
Quarter: 2013Q3

REPORT INFORMATION
  Report Type: Report from Study
  Country: NL (occurrence: NL)
  Receive Date: 20130620
  Receipt Date: 20130717
  Transmission Date: 20140515
  Serious: Yes (Hospitalization)
  Sender: FDA-Public Use
  Company Number: PHHO2013NL006444

PATIENT
  Age: 58 Year
  Sex: Male
  Weight: 98 kg

DRUGS (4)
  1. MYCOPHENOLIC ACID [Suspect]
     Indication: STEM CELL TRANSPLANT
     Dosage: 1080 MG, BID
     Route: 048
     Dates: start: 20130405, end: 20130513
  2. SANDIMMUN [Suspect]
     Indication: STEM CELL TRANSPLANT
     Dosage: 350 MG, BID
     Route: 048
     Dates: start: 20130402
  3. PREDNISOLONE SANDOZ [Suspect]
     Indication: STEM CELL TRANSPLANT
     Dosage: UNK
     Dates: start: 20130506
  4. PREDNISOLONE SANDOZ [Suspect]
     Dosage: UNK
     Dates: start: 20130517

REACTIONS (1)
  - Diarrhoea [Recovered/Resolved]
